FAERS Safety Report 14337881 (Version 1)
Quarter: 2017Q4

REPORT INFORMATION
  Report Type: Spontaneous
  Country: FR (occurrence: FR)
  Receive Date: 20171229
  Receipt Date: 20171229
  Transmission Date: 20180321
  Serious: Yes (Other)
  Sender: FDA-Public Use
  Company Number: FR-TEVA-2017-FR-838071

PATIENT
  Age: 40 Year
  Sex: Female

DRUGS (1)
  1. COPAXONE [Suspect]
     Active Substance: GLATIRAMER ACETATE
     Dates: start: 201709

REACTIONS (10)
  - Seizure [Unknown]
  - Nausea [Unknown]
  - Erythema [Unknown]
  - Joint stiffness [Recovered/Resolved]
  - Feeling hot [Unknown]
  - Pallor [Unknown]
  - Tremor [Recovered/Resolved]
  - Tension [Unknown]
  - Malaise [Unknown]
  - Headache [Recovered/Resolved]

NARRATIVE: CASE EVENT DATE: 20171215
